FAERS Safety Report 10347244 (Version 3)
Quarter: 2015Q3

REPORT INFORMATION
  Report Type: Report from Study
  Country: DE (occurrence: DE)
  Receive Date: 20140729
  Receipt Date: 20150708
  Transmission Date: 20151125
  Serious: Yes (Other)
  Sender: FDA-Public Use
  Company Number: DE-ROCHE-1440059

PATIENT
  Age: 76 Year
  Sex: Male
  Weight: 72 kg

DRUGS (7)
  1. OBINUTUZUMAB [Suspect]
     Active Substance: OBINUTUZUMAB
     Dosage: DAY 1 OF CYCLES 2-6 (28-DAY CYCLES) AS PER PROTOCOL
     Route: 042
  2. HYLO-GEL [Concomitant]
     Indication: CATARACT
     Route: 047
  3. IBUPROFEN. [Concomitant]
     Active Substance: IBUPROFEN
     Indication: BACK PAIN
     Route: 065
     Dates: start: 20130222
  4. BENDAMUSTINE [Suspect]
     Active Substance: BENDAMUSTINE
     Indication: NON-HODGKIN^S LYMPHOMA UNSPECIFIED HISTOLOGY INDOLENT
     Dosage: LAST DOSE OF BENDAMUSTINE: 162 MG
     Route: 042
     Dates: start: 20120530, end: 20121018
  5. OBINUTUZUMAB [Suspect]
     Active Substance: OBINUTUZUMAB
     Indication: NON-HODGKIN^S LYMPHOMA UNSPECIFIED HISTOLOGY INDOLENT
     Dosage: DAYS 1, 8 AND 15 OF CYCLE 1 AS PER PROTOCOL
     Route: 042
     Dates: start: 20120530
  6. OBINUTUZUMAB [Suspect]
     Active Substance: OBINUTUZUMAB
     Dosage: LAST DOSE PRIOR TO EVENT ON 10/APR/2014 (DOSE CONCENTRATION: 4MG/ML; VOLUME: 250 ML)
     Route: 042
     Dates: end: 20140410
  7. HYLO-GEL [Concomitant]
     Indication: DRY EYE

REACTIONS (1)
  - Corneal opacity [Not Recovered/Not Resolved]

NARRATIVE: CASE EVENT DATE: 20140716
